FAERS Safety Report 21533006 (Version 5)
Quarter: 2023Q2

REPORT INFORMATION
  Report Type: Report from Study
  Country: US (occurrence: US)
  Receive Date: 20221101
  Receipt Date: 20230421
  Transmission Date: 20230721
  Serious: No
  Sender: FDA-Public Use
  Company Number: US-NOVARTISTESTPH-NVSC2022US244636

PATIENT
  Sex: Male

DRUGS (2)
  1. COSENTYX [Suspect]
     Active Substance: SECUKINUMAB
     Indication: Psoriasis
     Dosage: 300 MG, OTHER (LOADING DOSES THEN EVERY 4 WEEKS)
     Route: 058
     Dates: start: 202209
  2. COSENTYX [Suspect]
     Active Substance: SECUKINUMAB
     Dosage: 300 MG, OTHER
     Route: 058
     Dates: start: 20221011

REACTIONS (5)
  - Pruritus [Unknown]
  - Ear infection [Unknown]
  - Tinnitus [Unknown]
  - Hypoacusis [Unknown]
  - Otorrhoea [Unknown]
